FAERS Safety Report 6131932-4 (Version None)
Quarter: 2009Q1

REPORT INFORMATION
  Report Type: 
  Country: None (occurrence: None)
  Receive Date: 20090325
  Receipt Date: 20090319
  Transmission Date: 20090719
  Serious: Yes (Disabling, Other)
  Sender: FDA-Public Use
  Company Number: GB-PFIZER INC-2009176965

PATIENT

DRUGS (6)
  1. ATORVASTATIN CALCIUM [Suspect]
     Indication: BLOOD CHOLESTEROL
     Dosage: 10 MG, 1X/DAY
     Dates: start: 20060101, end: 20080101
  2. PIOGLITAZONE [Concomitant]
     Indication: DIABETES MELLITUS
     Dosage: 30 MG, 1X/DAY
     Route: 048
     Dates: start: 19990101
  3. PERINDOPRIL [Concomitant]
     Indication: HYPERTENSION
     Dosage: 4 MG, UNK
     Dates: start: 19990101
  4. ATENOLOL [Concomitant]
     Indication: HYPERTENSION
     Dosage: 50 MG, 1X/DAY
     Route: 048
     Dates: start: 19990101
  5. CANDESARTAN [Concomitant]
     Indication: HYPERTENSION
     Dosage: 8 MG, UNK
     Route: 048
     Dates: start: 19990101
  6. METFORMIN [Suspect]
     Indication: DIABETES MELLITUS
     Dosage: 1.5 MG, 1X/DAY
     Dates: start: 19990101

REACTIONS (3)
  - MUSCLE ATROPHY [None]
  - MUSCULAR WEAKNESS [None]
  - MYALGIA [None]
